FAERS Safety Report 7961417-1 (Version None)
Quarter: 2011Q4

REPORT INFORMATION
  Report Type: 
  Country: None (occurrence: None)
  Receive Date: 20111202
  Receipt Date: 20110930
  Transmission Date: 20120403
  Serious: Yes (Hospitalization)
  Sender: FDA-Public Use
  Company Number: TPA2011A04272

PATIENT
  Age: 66 Year
  Sex: Male

DRUGS (4)
  1. ARANESP [Concomitant]
  2. COTANCYL (PREDNISONE) [Concomitant]
  3. AMIODARONE HCL [Concomitant]
  4. ADENURIC (FEBUXOSTAT) [Suspect]
     Indication: HYPERURICAEMIA
     Dosage: 80 MG (80 MG, 1 IN 1 D), ORAL
     Route: 048
     Dates: start: 20110216, end: 20110222

REACTIONS (1)
  - DERMATITIS ALLERGIC [None]
